FAERS Safety Report 5612426-9 (Version None)
Quarter: 2008Q1

REPORT INFORMATION
  Report Type: 
  Country: None (occurrence: None)
  Receive Date: 20080204
  Receipt Date: 20080129
  Transmission Date: 20080703
  Serious: Yes (Disabling, Other)
  Sender: FDA-Public Use
  Company Number: US-MERCK-0712USA01408

PATIENT
  Age: 22 Year
  Sex: Male
  Weight: 64 kg

DRUGS (5)
  1. STROMECTOL [Suspect]
     Indication: ACARODERMATITIS
     Route: 048
     Dates: start: 20070609, end: 20070609
  2. STROMECTOL [Suspect]
     Route: 048
     Dates: start: 20070616, end: 20070616
  3. STROMECTOL [Suspect]
     Route: 048
     Dates: start: 20070623, end: 20070623
  4. STROMECTOL [Suspect]
     Route: 048
     Dates: start: 20070627, end: 20070627
  5. ELIMITE [Concomitant]
     Route: 065

REACTIONS (3)
  - FATIGUE [None]
  - INAPPROPRIATE SCHEDULE OF DRUG ADMINISTRATION [None]
  - PLATELET COUNT DECREASED [None]
